FAERS Safety Report 10979368 (Version 2)
Quarter: 2015Q2

REPORT INFORMATION
  Report Type: Spontaneous
  Country: DE (occurrence: JP)
  Receive Date: 20150402
  Receipt Date: 20150427
  Transmission Date: 20150821
  Serious: Yes (Life-Threatening, Hospitalization)
  Sender: FDA-Public Use
  Company Number: JP-BRACCO-008829

PATIENT
  Age: 72 Year
  Sex: Male
  Weight: 56 kg

DRUGS (13)
  1. CINAL [Concomitant]
     Active Substance: ASCORBIC ACID\CALCIUM PANTOTHENATE
     Dates: start: 20150107
  2. LYRICA [Concomitant]
     Active Substance: PREGABALIN
     Dates: start: 20150107
  3. FRANDOL [Concomitant]
     Active Substance: ISOSORBIDE DINITRATE
     Dates: start: 20150107
  4. TEGAFUR [Concomitant]
     Active Substance: TEGAFUR
     Dates: start: 20150107
  5. GASMOTIN [Concomitant]
     Active Substance: MOSAPRIDE CITRATE
     Dates: start: 20150107
  6. IOPAMIRON [Suspect]
     Active Substance: IOPAMIDOL
     Indication: LIVER SCAN
     Route: 040
     Dates: start: 20150202, end: 20150202
  7. LAC-B [Concomitant]
     Active Substance: BIFIDOBACTERIUM SPP.
     Dates: start: 20150107
  8. PANCRELIPASE. [Concomitant]
     Active Substance: PANCRELIPASE
     Dates: start: 20150107
  9. KETOPROFEN. [Concomitant]
     Active Substance: KETOPROFEN
     Dates: start: 20150107
  10. SENNOSIDE [Concomitant]
     Active Substance: SENNOSIDES
     Dates: start: 20150107
  11. LEUCON [Concomitant]
     Dates: start: 20150107
  12. GEMZAR [Concomitant]
     Active Substance: GEMCITABINE HYDROCHLORIDE
  13. GASTER [Concomitant]
     Active Substance: FAMOTIDINE
     Dates: start: 20150107

REACTIONS (5)
  - Anaphylactic shock [Recovered/Resolved]
  - Acute respiratory distress syndrome [Recovered/Resolved]
  - Traumatic haemothorax [Unknown]
  - Pneumonia [Recovered/Resolved]
  - Disseminated intravascular coagulation [Recovered/Resolved]

NARRATIVE: CASE EVENT DATE: 20150202
